FAERS Safety Report 7637758 (Version 7)
Quarter: 2014Q1

REPORT INFORMATION
  Report Type: Spontaneous
  Country: GB (occurrence: GB)
  Receive Date: 20101022
  Receipt Date: 20140204
  Transmission Date: 20141002
  Serious: Yes (Death, Hospitalization, Other)
  Sender: FDA-Public Use
  Company Number: GB-PFIZER INC-2010130445

PATIENT
  Age: 75 Year
  Sex: Female
  Weight: 62.6 kg

DRUGS (15)
  1. ATORVASTATIN CALCIUM [Suspect]
     Indication: HYPERCHOLESTEROLAEMIA
     Dosage: UNK
     Dates: start: 19990101, end: 200203
  2. LANSOPRAZOLE [Suspect]
     Indication: DUODENAL ULCER
     Dosage: UNK
     Route: 065
     Dates: start: 20020301
  3. DILTIAZEM HCL [Suspect]
     Indication: HYPERTENSION
     Dosage: UNK
     Dates: start: 20020301
  4. FENTANYL [Suspect]
     Indication: ANAESTHESIA
     Dosage: UNK
     Route: 042
     Dates: start: 20020301, end: 20020301
  5. ARAVA [Suspect]
     Indication: RHEUMATOID ARTHRITIS
     Dosage: 20 MG, 1X/DAY
     Route: 048
     Dates: start: 200203
  6. CO-CODAMOL [Suspect]
     Indication: RHEUMATOID ARTHRITIS
     Dosage: UNK
     Dates: start: 20020301
  7. LISINOPRIL [Suspect]
     Indication: HYPERTENSION
     Dosage: UNK
     Route: 048
     Dates: start: 20020301, end: 200203
  8. ACETYLSALICYLIC ACID [Suspect]
     Indication: PAIN
     Dosage: UNK
     Dates: start: 20020301
  9. GLYCERYL TRINITRATE [Suspect]
     Indication: PAIN
     Dosage: UNK
     Route: 048
     Dates: start: 20020301, end: 200203
  10. BUDESONIDE [Suspect]
     Indication: ASTHMA
     Dosage: UNK
     Route: 055
     Dates: start: 20020301
  11. QUININE SULPHATE [Suspect]
     Indication: MUSCLE SPASMS
     Dosage: UNK
  12. PROPOFOL [Suspect]
     Indication: ANAESTHESIA
     Dosage: UNK
     Route: 042
     Dates: start: 20020301, end: 20020301
  13. MIDAZOLAM [Suspect]
     Indication: ANAESTHESIA
     Dosage: UNK
     Route: 042
     Dates: start: 20020301, end: 20020301
  14. PANCURONIUM BROMIDE [Suspect]
     Indication: MUSCLE RELAXANT THERAPY
     Dosage: UNK
     Dates: start: 20020301, end: 20020301
  15. FLIXONASE [Concomitant]
     Dosage: 1 UG, 2X/DAY
     Route: 045

REACTIONS (14)
  - Acute hepatic failure [Fatal]
  - Multi-organ failure [Fatal]
  - Renal failure [Fatal]
  - Diverticulitis [Fatal]
  - Intestinal ischaemia [Fatal]
  - Haematemesis [Fatal]
  - Myocardial ischaemia [Fatal]
  - Labile blood pressure [Fatal]
  - Gastrointestinal haemorrhage [Unknown]
  - Abdominal rigidity [Unknown]
  - Duodenal ulcer [Unknown]
  - Abdominal pain upper [Unknown]
  - Coronary artery disease [Unknown]
  - Coagulopathy [Unknown]
